FAERS Safety Report 9345035 (Version 2)
Quarter: 2013Q3

REPORT INFORMATION
  Report Type: Spontaneous
  Country: US (occurrence: US)
  Receive Date: 20130612
  Receipt Date: 20130724
  Transmission Date: 20140515
  Serious: No
  Sender: FDA-Public Use
  Company Number: US-009507513-1305USA017155

PATIENT
  Age: 45 Year
  Sex: Female
  Weight: 68.27 kg

DRUGS (4)
  1. CLARITIN LIQUIGELS [Suspect]
     Indication: SNEEZING
     Dosage: 10 MG, QD
     Route: 048
     Dates: start: 20130410, end: 20130510
  2. CLARITIN LIQUIGELS [Suspect]
     Indication: MEDICAL OBSERVATION
  3. VITAMIN D (UNSPECIFIED) [Concomitant]
     Indication: VITAMIN D DECREASED
     Dosage: UNK, UNKNOWN
  4. CHONDROITIN SULFATE SODIUM (+) GLUCOSAMINE SULFATE [Concomitant]
     Indication: ARTHRALGIA
     Dosage: UNK, UNKNOWN

REACTIONS (1)
  - Drug ineffective [Unknown]
